FAERS Safety Report 7269466-6 (Version None)
Quarter: 2011Q1

REPORT INFORMATION
  Report Type: 
  Country: None (occurrence: None)
  Receive Date: 20110202
  Receipt Date: 20110201
  Transmission Date: 20110831
  Serious: Yes (Other)
  Sender: FDA-Public Use
  Company Number: US-ABBOTT-11P-163-0701744-00

PATIENT
  Age: 37 Year
  Sex: Female

DRUGS (5)
  1. KALETRA [Suspect]
     Indication: ANTIRETROVIRAL THERAPY
     Dosage: 800MG/DAY
     Route: 048
     Dates: start: 20101007
  2. ISENTRESS [Suspect]
     Indication: ANTIRETROVIRAL THERAPY
     Dosage: 800MG/DAY
     Route: 048
     Dates: end: 20101007
  3. ISENTRESS [Suspect]
     Dosage: 600MG/DAY
     Route: 048
     Dates: start: 20110113
  4. VIREAD [Suspect]
     Indication: ANTIRETROVIRAL THERAPY
     Dosage: 300MG/DAY
     Route: 048
  5. EPZICOM [Suspect]
     Indication: ANTIRETROVIRAL THERAPY
     Dosage: 1 TAB/CAPS

REACTIONS (1)
  - ABORTION SPONTANEOUS [None]
